FAERS Safety Report 5898243-3 (Version None)
Quarter: 2008Q3

REPORT INFORMATION
  Report Type: 
  Country: None (occurrence: None)
  Receive Date: 20080925
  Receipt Date: 20070801
  Transmission Date: 20090109
  Serious: No
  Sender: FDA-Public Use
  Company Number: A0667639A

PATIENT
  Age: 38 Year
  Sex: Male

DRUGS (6)
  1. WELLBUTRIN XL [Suspect]
     Indication: DEPRESSION
     Dosage: 300MG PER DAY
     Route: 048
     Dates: start: 20070701
  2. ALCOHOL [Suspect]
     Dosage: 750ML PER DAY
     Route: 048
  3. LEXAPRO [Concomitant]
  4. CHANTIX [Concomitant]
  5. ATENOLOL [Concomitant]
  6. UNKNOWN MEDICATION [Concomitant]

REACTIONS (3)
  - HYPOAESTHESIA [None]
  - PAIN [None]
  - PARAESTHESIA [None]
